FAERS Safety Report 4630972-1 (Version None)
Quarter: 2005Q2

REPORT INFORMATION
  Report Type: 
  Country: None (occurrence: None)
  Receive Date: 20050406
  Receipt Date: 20050406
  Transmission Date: 20051028
  Serious: Yes (Hospitalization)
  Sender: FDA-Public Use
  Company Number: None

PATIENT
  Sex: Female

DRUGS (2)
  1. YASMIN [Suspect]
     Indication: POLYCYSTIC OVARIES
     Dosage: ONE TABLET DAILY ORAL
     Route: 048
     Dates: start: 20040201, end: 20040703
  2. SPIRONOLACTONE [Concomitant]

REACTIONS (2)
  - PARAESTHESIA [None]
  - PULMONARY EMBOLISM [None]
